FAERS Safety Report 24867137 (Version 1)
Quarter: 2025Q1

REPORT INFORMATION
  Report Type: Spontaneous
  Country: EG (occurrence: EG)
  Receive Date: 20250121
  Receipt Date: 20250121
  Transmission Date: 20250409
  Serious: Yes (Death)
  Sender: ASTELLAS
  Company Number: EG-ASTELLAS-2025-AER-003625

PATIENT
  Age: 8 Decade

DRUGS (1)
  1. ENFORTUMAB VEDOTIN [Suspect]
     Active Substance: ENFORTUMAB VEDOTIN
     Indication: Product used for unknown indication
     Route: 065

REACTIONS (1)
  - Death [Fatal]
